FAERS Safety Report 13967667 (Version 1)
Quarter: 2017Q3

REPORT INFORMATION
  Report Type: Spontaneous
  Country: US (occurrence: None)
  Receive Date: 20170914
  Receipt Date: 20170914
  Transmission Date: 20171128
  Serious: Yes (Disabling)
  Sender: FDA-Public Use
  Company Number: None

PATIENT
  Age: 44 Year
  Sex: Female
  Weight: 65.77 kg

DRUGS (2)
  1. ADVIL [Concomitant]
     Active Substance: IBUPROFEN
  2. MIRENA [Suspect]
     Active Substance: LEVONORGESTREL
     Dates: start: 20150701, end: 20170522

REACTIONS (1)
  - Musculoskeletal pain [None]

NARRATIVE: CASE EVENT DATE: 20161010
